FAERS Safety Report 14620294 (Version 11)
Quarter: 2020Q1

REPORT INFORMATION
  Report Type: Spontaneous
  Country: US (occurrence: US)
  Receive Date: 20180309
  Receipt Date: 20200304
  Transmission Date: 20200409
  Serious: No
  Sender: FDA-Public Use
  Company Number: US-BIOGEN-2017BI00406064

PATIENT
  Age: 67 Year
  Sex: Female

DRUGS (42)
  1. AMPYRA [Concomitant]
     Active Substance: DALFAMPRIDINE
     Route: 050
     Dates: start: 201005
  2. AMPYRA [Concomitant]
     Active Substance: DALFAMPRIDINE
     Dosage: EVERY 12 HOURS
     Route: 050
     Dates: start: 20150624
  3. AMANTADINE. [Concomitant]
     Active Substance: AMANTADINE HYDROCHLORIDE
     Indication: PRODUCT USED FOR UNKNOWN INDICATION
     Route: 050
  4. TECFIDERA [Suspect]
     Active Substance: DIMETHYL FUMARATE
     Route: 050
  5. AMPYRA [Concomitant]
     Active Substance: DALFAMPRIDINE
     Dosage: EVERY 12 HOURS
     Route: 050
  6. AMPYRA [Concomitant]
     Active Substance: DALFAMPRIDINE
     Dosage: EVERY 12 HOURS
     Route: 050
     Dates: start: 20100507
  7. TOVIAZ [Concomitant]
     Active Substance: FESOTERODINE FUMARATE
     Indication: PRODUCT USED FOR UNKNOWN INDICATION
     Route: 050
  8. AZELASTINE. [Concomitant]
     Active Substance: AZELASTINE HYDROCHLORIDE
     Indication: PRODUCT USED FOR UNKNOWN INDICATION
     Route: 050
  9. TECFIDERA [Suspect]
     Active Substance: DIMETHYL FUMARATE
     Indication: MULTIPLE SCLEROSIS
     Dosage: MAINTENANCE DOSE
     Route: 050
  10. TECFIDERA [Suspect]
     Active Substance: DIMETHYL FUMARATE
     Dosage: MAINTENANCE DOSE
     Route: 050
     Dates: start: 20161220
  11. AMPYRA [Concomitant]
     Active Substance: DALFAMPRIDINE
     Dosage: EVERY 12 HOURS
     Route: 050
  12. SIMVASTATIN. [Concomitant]
     Active Substance: SIMVASTATIN
     Indication: PRODUCT USED FOR UNKNOWN INDICATION
     Route: 050
  13. SUDOGEST [Concomitant]
     Active Substance: PSEUDOEPHEDRINE HYDROCHLORIDE
     Indication: PRODUCT USED FOR UNKNOWN INDICATION
     Route: 050
  14. ESCITALOPRAM [Concomitant]
     Active Substance: ESCITALOPRAM OXALATE
     Indication: PRODUCT USED FOR UNKNOWN INDICATION
     Route: 050
     Dates: start: 20100504
  15. OXYBUTYNIN CHLORIDE. [Concomitant]
     Active Substance: OXYBUTYNIN CHLORIDE
     Indication: PRODUCT USED FOR UNKNOWN INDICATION
     Route: 050
  16. GABAPENTIN. [Concomitant]
     Active Substance: GABAPENTIN
     Indication: PRODUCT USED FOR UNKNOWN INDICATION
     Route: 050
  17. TECFIDERA [Suspect]
     Active Substance: DIMETHYL FUMARATE
     Route: 050
  18. AMPYRA [Concomitant]
     Active Substance: DALFAMPRIDINE
     Indication: MULTIPLE SCLEROSIS
     Dosage: EVERY 12 HOURS
     Route: 050
     Dates: start: 20100506
  19. VESICARE [Concomitant]
     Active Substance: SOLIFENACIN SUCCINATE
     Indication: PRODUCT USED FOR UNKNOWN INDICATION
     Route: 050
  20. BENZONATATE. [Concomitant]
     Active Substance: BENZONATATE
     Indication: PRODUCT USED FOR UNKNOWN INDICATION
     Route: 050
  21. TECFIDERA [Suspect]
     Active Substance: DIMETHYL FUMARATE
     Dosage: MAINTENANCE DOSE
     Route: 050
     Dates: start: 2015
  22. TECFIDERA [Suspect]
     Active Substance: DIMETHYL FUMARATE
     Route: 050
  23. AMPYRA [Concomitant]
     Active Substance: DALFAMPRIDINE
     Route: 050
  24. AMPYRA [Concomitant]
     Active Substance: DALFAMPRIDINE
     Route: 050
  25. BACLOFEN. [Concomitant]
     Active Substance: BACLOFEN
     Indication: PRODUCT USED FOR UNKNOWN INDICATION
     Route: 050
  26. DALFAMPRIDINE. [Concomitant]
     Active Substance: DALFAMPRIDINE
     Indication: GAIT DISTURBANCE
     Route: 048
  27. TECFIDERA [Suspect]
     Active Substance: DIMETHYL FUMARATE
     Dosage: MAINTENANCE DOSE
     Route: 050
  28. AMPYRA [Concomitant]
     Active Substance: DALFAMPRIDINE
     Route: 050
  29. IBUPROFEN. [Concomitant]
     Active Substance: IBUPROFEN
     Indication: PRODUCT USED FOR UNKNOWN INDICATION
     Dosage: AS NEEDED
     Route: 050
  30. CETIRIZINE HYDROCHLORIDE. [Concomitant]
     Active Substance: CETIRIZINE HYDROCHLORIDE
     Indication: PRODUCT USED FOR UNKNOWN INDICATION
     Route: 050
  31. FLUCONAZOLE. [Concomitant]
     Active Substance: FLUCONAZOLE
     Indication: PRODUCT USED FOR UNKNOWN INDICATION
     Route: 050
  32. TECFIDERA [Suspect]
     Active Substance: DIMETHYL FUMARATE
     Dosage: MAINTENANCE DOSE
     Route: 050
  33. TECFIDERA [Suspect]
     Active Substance: DIMETHYL FUMARATE
     Route: 050
     Dates: start: 201612
  34. TECFIDERA [Suspect]
     Active Substance: DIMETHYL FUMARATE
     Route: 050
     Dates: start: 201612
  35. AMPYRA [Concomitant]
     Active Substance: DALFAMPRIDINE
     Route: 050
     Dates: start: 201011
  36. AMPYRA [Concomitant]
     Active Substance: DALFAMPRIDINE
     Dosage: EVERY 12 HOURS
     Route: 050
     Dates: start: 20170517
  37. TECFIDERA [Suspect]
     Active Substance: DIMETHYL FUMARATE
     Dosage: MAINTENANCE DOSE
     Route: 050
  38. TECFIDERA [Suspect]
     Active Substance: DIMETHYL FUMARATE
     Route: 050
     Dates: start: 20161220
  39. TECFIDERA [Suspect]
     Active Substance: DIMETHYL FUMARATE
     Route: 050
  40. AMPYRA [Concomitant]
     Active Substance: DALFAMPRIDINE
     Route: 050
  41. MODAFINIL. [Concomitant]
     Active Substance: MODAFINIL
     Indication: PRODUCT USED FOR UNKNOWN INDICATION
     Route: 050
  42. AMITRIPTYLINE [Concomitant]
     Active Substance: AMITRIPTYLINE
     Indication: PRODUCT USED FOR UNKNOWN INDICATION
     Route: 050

REACTIONS (7)
  - Fall [Not Recovered/Not Resolved]
  - Cough [Not Recovered/Not Resolved]
  - Drug hypersensitivity [Unknown]
  - Dermatitis contact [Unknown]
  - Depression [Unknown]
  - Leukopenia [Unknown]
  - Jaw disorder [Unknown]

NARRATIVE: CASE EVENT DATE: 20150516
